FAERS Safety Report 10471412 (Version 2)
Quarter: 2016Q4

REPORT INFORMATION
  Report Type: Report from Study
  Country: None (occurrence: US)
  Receive Date: 20140923
  Receipt Date: 20161006
  Transmission Date: 20170206
  Serious: Yes (Hospitalization)
  Sender: FDA-Public Use
  Company Number: US-ABBVIE-14K-163-1286494-00

PATIENT
  Age: 55 Year
  Sex: Male
  Weight: 63.56 kg

DRUGS (7)
  1. ACEON [Concomitant]
     Active Substance: PERINDOPRIL ERBUMINE
     Indication: ATRIOVENTRICULAR BLOCK
  2. ANTIVERT [Concomitant]
     Active Substance: MECLIZINE HYDROCHLORIDE
     Indication: PRODUCT USED FOR UNKNOWN INDICATION
  3. WARFARIN [Concomitant]
     Active Substance: WARFARIN
     Indication: CARDIAC PACEMAKER INSERTION
  4. HUMIRA [Suspect]
     Active Substance: ADALIMUMAB
     Indication: RHEUMATOID ARTHRITIS
     Route: 058
     Dates: start: 20140820, end: 201607
  5. HUMIRA [Suspect]
     Active Substance: ADALIMUMAB
     Route: 058
     Dates: start: 201607
  6. METHOTREXATE. [Concomitant]
     Active Substance: METHOTREXATE
     Indication: PRODUCT USED FOR UNKNOWN INDICATION
  7. CARVEDILOL. [Concomitant]
     Active Substance: CARVEDILOL
     Indication: ATRIOVENTRICULAR BLOCK

REACTIONS (6)
  - Dyspnoea [Not Recovered/Not Resolved]
  - Influenza like illness [Not Recovered/Not Resolved]
  - Device malfunction [Recovered/Resolved]
  - Oropharyngeal discomfort [Not Recovered/Not Resolved]
  - Cardiac failure [Recovered/Resolved]
  - Arthropod sting [Recovered/Resolved]

NARRATIVE: CASE EVENT DATE: 2014
